FAERS Safety Report 9758720 (Version 1)
Quarter: 2013Q4

REPORT INFORMATION
  Report Type: Spontaneous
  Country: US (occurrence: None)
  Receive Date: 20131216
  Receipt Date: 20131216
  Transmission Date: 20140711
  Serious: Yes (Other)
  Sender: FDA-Public Use
  Company Number: 072017

PATIENT
  Age: 39 Year
  Sex: Female
  Weight: 100 kg

DRUGS (2)
  1. CIMZIA [Suspect]
     Indication: CROHN^S DISEASE
     Dosage: (400 MG 1X/2 WEEKS, AT WEEKS 0, 2, 4. 3RD INDUCTION DOSE WAS ON 08 -DEC -2012)
  2. CIMZIA [Suspect]
     Indication: COLITIS ULCERATIVE
     Dosage: (400 MG 1X/2 WEEKS, AT WEEKS 0, 2, 4. 3RD INDUCTION DOSE WAS ON 08 -DEC -2012)

REACTIONS (4)
  - Colitis ulcerative [None]
  - Drug ineffective [None]
  - Product quality issue [None]
  - Menstruation irregular [None]
